FAERS Safety Report 9448410 (Version 1)
Quarter: 2013Q3

REPORT INFORMATION
  Report Type: Spontaneous
  Country: IT (occurrence: IT)
  Receive Date: 20130808
  Receipt Date: 20130808
  Transmission Date: 20140515
  Serious: Yes (Other)
  Sender: FDA-Public Use
  Company Number: PHHY2013IT081840

PATIENT
  Age: 4 Year
  Sex: Male

DRUGS (2)
  1. AMOXICILLIN-CLAVULANIC ACID [Suspect]
     Route: 048
  2. AMOXICILLIN [Suspect]
     Indication: EAR INFECTION
     Route: 048

REACTIONS (4)
  - Conjunctivitis [Recovered/Resolved]
  - Angioedema [Recovered/Resolved]
  - Dermatitis exfoliative [Recovered/Resolved]
  - Skin reaction [Unknown]
